FAERS Safety Report 18394501 (Version 2)
Quarter: 2020Q4

REPORT INFORMATION
  Report Type: Report from Study
  Country: MX (occurrence: MX)
  Receive Date: 20201017
  Receipt Date: 20201027
  Transmission Date: 20210114
  Serious: No
  Sender: FDA-Public Use
  Company Number: NVSC2020MX061605

PATIENT
  Sex: Female

DRUGS (3)
  1. EXELON [Suspect]
     Active Substance: RIVASTIGMINE TARTRATE
     Dosage: 1 DF, QD (18 MG)
     Route: 003
  2. EXELON [Suspect]
     Active Substance: RIVASTIGMINE TARTRATE
     Dosage: 1 DF, QD (27 MG)
     Route: 003
  3. EXELON [Suspect]
     Active Substance: RIVASTIGMINE TARTRATE
     Indication: DEMENTIA ALZHEIMER^S TYPE
     Dosage: 1 DF, QD (18 MG)
     Route: 003
     Dates: start: 201910

REACTIONS (15)
  - Musculoskeletal discomfort [Unknown]
  - Insomnia [Unknown]
  - Anxiety [Unknown]
  - Helplessness [Unknown]
  - Crying [Unknown]
  - Mood altered [Not Recovered/Not Resolved]
  - Disorientation [Recovered/Resolved]
  - Feeling abnormal [Recovered/Resolved]
  - Abnormal dreams [Unknown]
  - Depressed mood [Recovered/Resolved]
  - Fall [Recovered/Resolved]
  - Headache [Unknown]
  - Depressed mood [Unknown]
  - Somnolence [Unknown]
  - Fatigue [Unknown]
